FAERS Safety Report 22079155 (Version 1)
Quarter: 2023Q1

REPORT INFORMATION
  Report Type: Spontaneous
  Country: US (occurrence: None)
  Receive Date: 20230309
  Receipt Date: 20230309
  Transmission Date: 20230418
  Serious: No
  Sender: FDA-Public Use
  Company Number: None

PATIENT
  Age: 48 Year
  Sex: Female
  Weight: 56.7 kg

DRUGS (4)
  1. MUCINEX DM [Suspect]
     Active Substance: DEXTROMETHORPHAN HYDROBROMIDE\GUAIFENESIN
     Indication: Pulmonary congestion
     Dosage: FREQUENCY : EVERY 12 HOURS;?
     Route: 048
     Dates: start: 20230307, end: 20230307
  2. PRIMIDONE [Concomitant]
     Active Substance: PRIMIDONE
  3. VITAMINS [Concomitant]
     Active Substance: VITAMINS
  4. MUCINEX DM [Suspect]
     Active Substance: DEXTROMETHORPHAN HYDROBROMIDE\GUAIFENESIN
     Indication: Aphonia

REACTIONS (11)
  - Sputum discoloured [None]
  - Chills [None]
  - Hyperhidrosis [None]
  - Feeling abnormal [None]
  - Headache [None]
  - Dizziness [None]
  - Palpitations [None]
  - Abdominal pain upper [None]
  - Pain in extremity [None]
  - Muscle spasms [None]
  - Laryngitis [None]

NARRATIVE: CASE EVENT DATE: 20230307
